FAERS Safety Report 4982673-8 (Version None)
Quarter: 2006Q2

REPORT INFORMATION
  Report Type: 
  Country: None (occurrence: None)
  Receive Date: 20060420
  Receipt Date: 20060406
  Transmission Date: 20061013
  Serious: Yes (Other)
  Sender: FDA-Public Use
  Company Number: 430014M06USA

PATIENT
  Age: 59 Year
  Sex: Female
  Weight: 70.6251 kg

DRUGS (1)
  1. NOVANTRONE [Suspect]
     Indication: MULTIPLE SCLEROSIS
     Dosage: 21 MG, 1 IN 3 MONTHS, INTRAVENOUS[NOT OTHERWISE SPECIFIED]
     Route: 042
     Dates: start: 20040407, end: 20051201

REACTIONS (2)
  - EJECTION FRACTION DECREASED [None]
  - HYPERTENSION [None]
